FAERS Safety Report 5014763-8 (Version None)
Quarter: 2006Q2

REPORT INFORMATION
  Report Type: 
  Country: None (occurrence: None)
  Receive Date: 20060531
  Receipt Date: 20060517
  Transmission Date: 20061013
  Serious: Yes (Hospitalization)
  Sender: FDA-Public Use
  Company Number: GB-ROCHE-449340

PATIENT
  Age: 82 Year
  Sex: Male

DRUGS (10)
  1. BONIVA [Suspect]
     Indication: BONE PAIN
     Route: 042
     Dates: start: 20060503, end: 20060505
  2. PARACETAMOL [Concomitant]
  3. FESO4 [Concomitant]
  4. ATENOLOL [Concomitant]
  5. OMEPRAZOLE [Concomitant]
  6. MOVICOL [Concomitant]
  7. CASODEX [Concomitant]
  8. DEXAMETHASONE TAB [Concomitant]
  9. ORAMORPH SR [Concomitant]
  10. MST [Concomitant]

REACTIONS (1)
  - HYPOCALCAEMIA [None]
